FAERS Safety Report 8444692-9 (Version None)
Quarter: 2012Q2

REPORT INFORMATION
  Report Type: 
  Country: None (occurrence: None)
  Receive Date: 20120611
  Receipt Date: 20120531
  Transmission Date: 20120825
  Serious: Yes (Disabling, Other)
  Sender: FDA-Public Use
  Company Number: ACO_30591_2012

PATIENT
  Age: 38 Year
  Sex: Female

DRUGS (1)
  1. AMPYRA [Suspect]
     Indication: PRODUCT USED FOR UNKNOWN INDICATION
     Dosage: 10 MG, Q, 12 HRS
     Dates: start: 20120501, end: 20120501

REACTIONS (3)
  - BALANCE DISORDER [None]
  - ABASIA [None]
  - HYPOAESTHESIA [None]
